FAERS Safety Report 22280233 (Version 1)
Quarter: 2023Q2

REPORT INFORMATION
  Report Type: Spontaneous
  Country: US (occurrence: US)
  Receive Date: 20230503
  Receipt Date: 20230503
  Transmission Date: 20230722
  Serious: No
  Sender: FDA-Public Use
  Company Number: US-FreseniusKabi-FK202305155

PATIENT
  Age: 6 Year
  Sex: Male
  Weight: 28 kg

DRUGS (3)
  1. DIPRIVAN [Suspect]
     Active Substance: PROPOFOL
     Indication: Sedation
     Dosage: REQUIRED 225 MCG/KG/H INFUSION WITH A 10 MG BOLUS AND ADDITIONAL PRECEDEX 10 MCG BOLUS?DURATION OF T
     Route: 042
     Dates: start: 20230414
  2. DIPRIVAN [Suspect]
     Active Substance: PROPOFOL
     Dosage: REQUIRED 225 MCG/KG/H INFUSION WITH A 10 MG BOLUS AND ADDITIONAL PRECEDEX 10 MCG BOLUS?DURATION OF T
     Route: 040
     Dates: start: 20230414
  3. PRECEDEX [Concomitant]
     Active Substance: DEXMEDETOMIDINE HYDROCHLORIDE
     Indication: Sedation
     Dosage: 10 MCG BOLUS
     Dates: start: 20230414

REACTIONS (1)
  - Therapeutic product effect decreased [Unknown]

NARRATIVE: CASE EVENT DATE: 20230414
